FAERS Safety Report 4643539-6 (Version None)
Quarter: 2005Q2

REPORT INFORMATION
  Report Type: 
  Country: None (occurrence: None)
  Receive Date: 20050425
  Receipt Date: 20050412
  Transmission Date: 20051028
  Serious: Yes (Hospitalization, Other)
  Sender: FDA-Public Use
  Company Number: US-JNJFOC-20040404311

PATIENT
  Sex: Female
  Weight: 73.94 kg

DRUGS (11)
  1. REMICADE [Suspect]
     Route: 042
  2. REMICADE [Suspect]
     Route: 042
  3. REMICADE [Suspect]
     Route: 042
  4. REMICADE [Suspect]
     Indication: RHEUMATOID ARTHRITIS
     Route: 042
  5. ISONIAZID [Suspect]
     Indication: DRUG USE FOR UNKNOWN INDICATION
  6. METHOTREXATE [Concomitant]
  7. PREDNISONE [Concomitant]
  8. NAPROXEN [Concomitant]
  9. FOLIC ACID [Concomitant]
  10. CIPROFLOXACIN HCL [Concomitant]
  11. ACIPHEX [Concomitant]

REACTIONS (26)
  - ABDOMINAL PAIN [None]
  - BLISTER [None]
  - BRONCHITIS [None]
  - CHEST DISCOMFORT [None]
  - CONSTIPATION [None]
  - DEHYDRATION [None]
  - DIARRHOEA [None]
  - DIZZINESS [None]
  - FLATULENCE [None]
  - GOITRE [None]
  - HYPERLIPIDAEMIA [None]
  - HYPERTENSION [None]
  - LIVER FUNCTION TEST ABNORMAL [None]
  - NEPHROLITHIASIS [None]
  - OTITIS MEDIA [None]
  - PHARYNGITIS [None]
  - PHOTODERMATOSIS [None]
  - PLATELET COUNT INCREASED [None]
  - PLEURAL EFFUSION [None]
  - PNEUMONIA [None]
  - PNEUMONITIS [None]
  - PSEUDOMONAS INFECTION [None]
  - PYREXIA [None]
  - SINUS TACHYCARDIA [None]
  - TUBERCULOSIS [None]
  - WEIGHT DECREASED [None]
